FAERS Safety Report 7316953-8 (Version None)
Quarter: 2011Q1

REPORT INFORMATION
  Report Type: 
  Country: None (occurrence: None)
  Receive Date: 20110226
  Receipt Date: 20100907
  Transmission Date: 20110831
  Serious: No
  Sender: FDA-Public Use
  Company Number: US-ALLERGAN-1011508US

PATIENT
  Sex: Female

DRUGS (4)
  1. BOTOXA? [Suspect]
     Dosage: 100 UNITS, SINGLE
     Route: 030
     Dates: start: 20100326, end: 20100326
  2. PROMETHAZINE [Concomitant]
  3. BOTOXA? [Suspect]
     Indication: TORTICOLLIS
     Dosage: 100 UNITS, SINGLE
     Route: 030
     Dates: start: 20091218, end: 20091218
  4. BOTOXA? [Suspect]
     Dosage: 100 UNITS, SINGLE
     Route: 030
     Dates: start: 20100618, end: 20100618

REACTIONS (2)
  - VISUAL IMPAIRMENT [None]
  - HEADACHE [None]
